FAERS Safety Report 13871822 (Version 1)
Quarter: 2017Q3

REPORT INFORMATION
  Report Type: Report from Study
  Country: US (occurrence: US)
  Receive Date: 20170816
  Receipt Date: 20170816
  Transmission Date: 20171127
  Serious: Yes (Other)
  Sender: FDA-Public Use
  Company Number: US-SHIRE-US201714829

PATIENT
  Age: 50 Year
  Sex: Female
  Weight: 88.44 kg

DRUGS (2)
  1. GATTEX [Suspect]
     Active Substance: TEDUGLUTIDE\WATER
     Dosage: 0.35 ML, 2X A WEEK
     Route: 058
     Dates: start: 20170603
  2. GATTEX [Suspect]
     Active Substance: TEDUGLUTIDE\WATER
     Indication: SHORT-BOWEL SYNDROME
     Dosage: 0.41 ML, UNKNOWN
     Route: 058
     Dates: start: 20161017

REACTIONS (4)
  - Fluid retention [Recovering/Resolving]
  - Intestinal obstruction [Unknown]
  - Dehydration [Recovering/Resolving]
  - Weight increased [Unknown]

NARRATIVE: CASE EVENT DATE: 20170614
